FAERS Safety Report 16402570 (Version 2)
Quarter: 2019Q2

REPORT INFORMATION
  Report Type: Spontaneous
  Country: US (occurrence: US)
  Receive Date: 20190607
  Receipt Date: 20190607
  Transmission Date: 20190711
  Serious: No
  Sender: FDA-Public Use
  Company Number: US-MALLINCKRODT-T201804462

PATIENT
  Sex: Female
  Weight: 74 kg

DRUGS (2)
  1. HYDROCODONE/ACETAMINOPHEN [Suspect]
     Active Substance: ACETAMINOPHEN\HYDROCODONE
     Indication: PAIN
     Dosage: 5/325 MG
     Route: 065
  2. HYDROCODONE/ACETAMINOPHEN [Suspect]
     Active Substance: ACETAMINOPHEN\HYDROCODONE
     Indication: PAIN
     Dosage: 10/325 MG, 2 TABLETS EVERY 6-8 HOURS AND DECREASE TO TWO AND FURTHER DECREASED ONE
     Route: 065

REACTIONS (9)
  - Nausea [Recovering/Resolving]
  - Oesophageal neoplasm [Unknown]
  - Malaise [Unknown]
  - Abdominal pain upper [Recovering/Resolving]
  - Condition aggravated [Recovering/Resolving]
  - Pallor [Recovering/Resolving]
  - Headache [Recovering/Resolving]
  - Vision blurred [Recovering/Resolving]
  - Drug ineffective [Unknown]
